FAERS Safety Report 20369487 (Version 6)
Quarter: 2022Q4

REPORT INFORMATION
  Report Type: Report from Study
  Country: US (occurrence: US)
  Receive Date: 20220124
  Receipt Date: 20221222
  Transmission Date: 20230113
  Serious: Yes (Hospitalization, Other)
  Sender: FDA-Public Use
  Company Number: US-TAKEDA-2022TUS002838

PATIENT
  Age: 1 Year
  Sex: Male

DRUGS (12)
  1. TEDUGLUTIDE [Suspect]
     Active Substance: TEDUGLUTIDE
     Indication: Short-bowel syndrome
     Dosage: 0.58 MILLIGRAM, QD
     Route: 058
     Dates: start: 20211207
  2. TEDUGLUTIDE [Suspect]
     Active Substance: TEDUGLUTIDE
     Indication: Short-bowel syndrome
     Dosage: 0.58 MILLIGRAM, QD
     Route: 058
     Dates: start: 20211207
  3. TEDUGLUTIDE [Suspect]
     Active Substance: TEDUGLUTIDE
     Indication: Short-bowel syndrome
     Dosage: 0.58 MILLIGRAM, QD
     Route: 058
     Dates: start: 20211207
  4. TEDUGLUTIDE [Suspect]
     Active Substance: TEDUGLUTIDE
     Indication: Short-bowel syndrome
     Dosage: 0.58 MILLIGRAM, QD
     Route: 058
     Dates: start: 20211207
  5. TEDUGLUTIDE [Suspect]
     Active Substance: TEDUGLUTIDE
     Dosage: 0.58 MILLIGRAM, QD
     Route: 058
     Dates: start: 202112
  6. TEDUGLUTIDE [Suspect]
     Active Substance: TEDUGLUTIDE
     Dosage: 0.58 MILLIGRAM, QD
     Route: 058
     Dates: start: 202112
  7. TEDUGLUTIDE [Suspect]
     Active Substance: TEDUGLUTIDE
     Dosage: 0.58 MILLIGRAM, QD
     Route: 058
     Dates: start: 202112
  8. TEDUGLUTIDE [Suspect]
     Active Substance: TEDUGLUTIDE
     Dosage: 0.58 MILLIGRAM, QD
     Route: 058
     Dates: start: 202112
  9. TEDUGLUTIDE [Suspect]
     Active Substance: TEDUGLUTIDE
     Dosage: 0.58 MILLIGRAM, QD
     Route: 058
     Dates: start: 20211215
  10. TEDUGLUTIDE [Suspect]
     Active Substance: TEDUGLUTIDE
     Dosage: 0.58 MILLIGRAM, QD
     Route: 058
     Dates: start: 20211215
  11. TEDUGLUTIDE [Suspect]
     Active Substance: TEDUGLUTIDE
     Dosage: 0.58 MILLIGRAM, QD
     Route: 058
     Dates: start: 20211215
  12. TEDUGLUTIDE [Suspect]
     Active Substance: TEDUGLUTIDE
     Dosage: 0.58 MILLIGRAM, QD
     Route: 058
     Dates: start: 20211215

REACTIONS (5)
  - Complication associated with device [Unknown]
  - Vascular device infection [Unknown]
  - Vomiting [Unknown]
  - Weight decreased [Unknown]
  - Product dose omission issue [Unknown]

NARRATIVE: CASE EVENT DATE: 20220103
